FAERS Safety Report 6260532-0 (Version None)
Quarter: 2009Q3

REPORT INFORMATION
  Report Type: 
  Country: None (occurrence: None)
  Receive Date: 20090708
  Receipt Date: 20090629
  Transmission Date: 20100115
  Serious: Yes (Other)
  Sender: FDA-Public Use
  Company Number: US-ELI_LILLY_AND_COMPANY-US200710003974

PATIENT
  Sex: Male
  Weight: 111.8 kg

DRUGS (10)
  1. LISPRO [Suspect]
     Indication: TYPE 1 DIABETES MELLITUS
     Dosage: 26 IU, DAILY (1/D)
     Route: 058
     Dates: start: 20020819
  2. LISPRO [Suspect]
     Dosage: 8 IU, UNK
     Dates: start: 20020819
  3. LISPRO [Suspect]
     Dosage: 10 IU, EACH EVENING
     Dates: start: 20020819
  4. INSULIN GLARGINE [Concomitant]
     Indication: TYPE 1 DIABETES MELLITUS
     Dosage: 70 IU, DAILY (1/D)
     Route: 058
     Dates: start: 20070819
  5. ASPIRIN [Concomitant]
     Dosage: 81 MG, DAILY (1/D)
     Route: 048
     Dates: start: 19950101
  6. EZETIMIBE [Concomitant]
     Dosage: 10 MG, DAILY (1/D)
     Route: 048
     Dates: start: 20060110
  7. SIMVASTATIN [Concomitant]
     Dosage: 40 MG, DAILY (1/D)
     Route: 048
     Dates: start: 20050110
  8. FEXOFENADINE HYDROCHLORIDE [Concomitant]
     Dosage: 180 MG, DAILY (1/D)
     Route: 048
     Dates: start: 20020701
  9. OMEPRAZOLE [Concomitant]
     Dosage: 20 MG, DAILY (1/D)
     Route: 048
     Dates: start: 20020712
  10. RAMIPRIL [Concomitant]
     Dosage: 10 MG, DAILY (1/D)
     Route: 048
     Dates: start: 20020701

REACTIONS (2)
  - HYPOGLYCAEMIA [None]
  - LOSS OF CONSCIOUSNESS [None]
